FAERS Safety Report 17939037 (Version 1)
Quarter: 2020Q2

REPORT INFORMATION
  Report Type: Report from Study
  Country: DE (occurrence: DE)
  Receive Date: 20200624
  Receipt Date: 20200624
  Transmission Date: 20200714
  Serious: Yes (Death)
  Sender: FDA-Public Use
  Company Number: DE-MYLANLABS-2020M1057908

PATIENT
  Age: 2 Year

DRUGS (1)
  1. CANDESARTAN. [Suspect]
     Active Substance: CANDESARTAN
     Indication: HYPERTENSION
     Dosage: LIQUID ORAL SUSPENSION
     Route: 048

REACTIONS (3)
  - Acute kidney injury [Fatal]
  - Pulmonary oedema [Fatal]
  - Brain oedema [Fatal]
